FAERS Safety Report 16002673 (Version 1)
Quarter: 2019Q1

REPORT INFORMATION
  Report Type: Spontaneous
  Country: US (occurrence: US)
  Receive Date: 20190225
  Receipt Date: 20190225
  Transmission Date: 20190418
  Serious: No
  Sender: FDA-Public Use
  Company Number: US-SA-2019SA045268

PATIENT
  Sex: Female

DRUGS (3)
  1. HALOBETASOL PROPIONATE. [Concomitant]
     Active Substance: HALOBETASOL PROPIONATE
  2. DUPIXENT [Suspect]
     Active Substance: DUPILUMAB
     Indication: DERMATITIS ATOPIC
     Dosage: 300 MG, QOW
     Route: 058
     Dates: start: 201805
  3. DROSPIRENONE;ETHINYLESTRADIOL [Concomitant]

REACTIONS (2)
  - Product dose omission [Unknown]
  - Dermatitis atopic [Unknown]
